FAERS Safety Report 9340441 (Version 1)
Quarter: 2013Q2

REPORT INFORMATION
  Report Type: Spontaneous
  Country: US (occurrence: US)
  Receive Date: 20130610
  Receipt Date: 20130610
  Transmission Date: 20140414
  Serious: No
  Sender: FDA-Public Use
  Company Number: US-MUTUAL PHARMACEUTICAL COMPANY, INC.-DXCY20120007

PATIENT
  Sex: Female
  Weight: 108.96 kg

DRUGS (2)
  1. DOXYCYCLINE [Suspect]
     Route: 048
     Dates: start: 2012
  2. UNSPECIFIED MEDICATIONS [Concomitant]
     Route: 065

REACTIONS (2)
  - Gastrointestinal pain [Not Recovered/Not Resolved]
  - Diarrhoea [Not Recovered/Not Resolved]
